FAERS Safety Report 25729698 (Version 2)
Quarter: 2025Q3

REPORT INFORMATION
  Report Type: Spontaneous
  Country: EU (occurrence: EU)
  Receive Date: 20250827
  Receipt Date: 20250930
  Transmission Date: 20251021
  Serious: Yes (Hospitalization, Other)
  Sender: DR REDDYS
  Company Number: None

PATIENT
  Age: 94 Year
  Sex: Male
  Weight: 94 kg

DRUGS (25)
  1. IBUPROFEN [Suspect]
     Active Substance: IBUPROFEN
     Indication: Psoriatic arthropathy
     Dosage: UNK, TID (800 OT)
     Route: 048
     Dates: start: 20150520
  2. METHOTREXATE [Suspect]
     Active Substance: METHOTREXATE
     Indication: Psoriatic arthropathy
     Dosage: 15 MG, QW (ONCE WEEKLY)
     Route: 048
     Dates: start: 20161215
  3. COSENTYX [Suspect]
     Active Substance: SECUKINUMAB
     Indication: Ankylosing spondylitis
     Route: 042
     Dates: start: 20170512, end: 20170512
  4. COSENTYX [Suspect]
     Active Substance: SECUKINUMAB
     Route: 042
     Dates: start: 20170519, end: 20170519
  5. COSENTYX [Suspect]
     Active Substance: SECUKINUMAB
     Route: 042
     Dates: start: 20170526, end: 20170526
  6. COSENTYX [Suspect]
     Active Substance: SECUKINUMAB
     Route: 042
     Dates: start: 20170602, end: 20170602
  7. COSENTYX [Suspect]
     Active Substance: SECUKINUMAB
     Route: 042
     Dates: start: 20170609, end: 20170609
  8. COSENTYX [Suspect]
     Active Substance: SECUKINUMAB
     Route: 042
     Dates: start: 20170710, end: 20170710
  9. COSENTYX [Suspect]
     Active Substance: SECUKINUMAB
     Route: 042
     Dates: start: 20170813, end: 20170813
  10. COSENTYX [Suspect]
     Active Substance: SECUKINUMAB
     Route: 042
     Dates: start: 20170915, end: 20170915
  11. COSENTYX [Suspect]
     Active Substance: SECUKINUMAB
     Route: 042
     Dates: start: 20171015, end: 20171015
  12. COSENTYX [Suspect]
     Active Substance: SECUKINUMAB
     Route: 042
     Dates: start: 20171115, end: 20171115
  13. COSENTYX [Suspect]
     Active Substance: SECUKINUMAB
     Route: 042
     Dates: start: 20171215, end: 20171215
  14. COSENTYX [Suspect]
     Active Substance: SECUKINUMAB
     Route: 042
     Dates: start: 20180115, end: 20180115
  15. COSENTYX [Suspect]
     Active Substance: SECUKINUMAB
     Route: 042
     Dates: start: 20180215, end: 20180215
  16. COSENTYX [Suspect]
     Active Substance: SECUKINUMAB
     Route: 042
     Dates: start: 20180315, end: 20180315
  17. Rubiefol [Concomitant]
     Indication: Psoriatic arthropathy
     Dosage: 5 MG, QW (ONCE WEEKLY)
     Route: 048
     Dates: start: 20161215
  18. AMOXICILLIN [Concomitant]
     Active Substance: AMOXICILLIN
     Indication: Prophylaxis
     Route: 065
  19. ASPIRIN [Concomitant]
     Active Substance: ASPIRIN
     Indication: Product used for unknown indication
     Dosage: 100 MG, UNK (1-0-0-0)
     Route: 065
     Dates: start: 201707
  20. VALSARTAN [Concomitant]
     Active Substance: VALSARTAN
     Indication: Product used for unknown indication
     Dosage: 80 MG (1-0-0-0)
     Route: 065
     Dates: start: 201707
  21. ATORVASTATIN [Concomitant]
     Active Substance: ATORVASTATIN
     Indication: Product used for unknown indication
     Dosage: 20 MG (0-0-0-1)
     Route: 065
     Dates: start: 201707
  22. PANTOPRAZOLE [Concomitant]
     Active Substance: PANTOPRAZOLE
     Indication: Product used for unknown indication
     Dosage: 40 MG (0-0-0-1)
     Route: 065
     Dates: start: 201707
  23. METAMIZOLE [Concomitant]
     Active Substance: METAMIZOLE
     Indication: Product used for unknown indication
     Route: 065
     Dates: start: 201707
  24. DAIVOBET [Concomitant]
     Active Substance: BETAMETHASONE DIPROPIONATE\CALCIPOTRIENE
     Indication: Psoriasis
     Dosage: 1 DOSAGE FORM, QD (ONCE A DAY) (TOPICAL)
     Route: 061
  25. RAMIPRIL [Concomitant]
     Active Substance: RAMIPRIL
     Indication: Product used for unknown indication
     Dosage: 5 MG, BID (10 MG QD, 1-0-1)
     Route: 065

REACTIONS (29)
  - Cardiovascular disorder [Recovering/Resolving]
  - Cold sweat [Recovering/Resolving]
  - Dyspnoea [Unknown]
  - Dysphagia [Recovering/Resolving]
  - Angioedema [Unknown]
  - Urticaria [Unknown]
  - Acute kidney injury [Unknown]
  - Glomerular filtration rate decreased [Unknown]
  - Drug-induced liver injury [Unknown]
  - Hepatitis E [Recovered/Resolved]
  - Liver injury [Unknown]
  - Blood pressure systolic decreased [Unknown]
  - Transaminases increased [Unknown]
  - Hyperbilirubinaemia [Unknown]
  - Acute hepatic failure [Unknown]
  - Dizziness [Unknown]
  - Coordination abnormal [Unknown]
  - Palpitations [Unknown]
  - Hyperhidrosis [Unknown]
  - Feeling cold [Unknown]
  - Faeces soft [Unknown]
  - Diarrhoea [Unknown]
  - Nausea [Unknown]
  - Chromaturia [Unknown]
  - Ocular icterus [Unknown]
  - Jaundice [Unknown]
  - General physical health deterioration [Recovering/Resolving]
  - C-reactive protein increased [Unknown]
  - Infection [Unknown]

NARRATIVE: CASE EVENT DATE: 20170525
